FAERS Safety Report 8398041-5 (Version None)
Quarter: 2012Q2

REPORT INFORMATION
  Report Type: 
  Country: None (occurrence: None)
  Receive Date: 20120531
  Receipt Date: 20120522
  Transmission Date: 20120825
  Serious: Yes (Other)
  Sender: FDA-Public Use
  Company Number: US-ASTELLAS-2012US005059

PATIENT
  Sex: Female

DRUGS (2)
  1. TARCEVA [Suspect]
     Dosage: UNK
     Route: 048
  2. TARCEVA [Suspect]
     Indication: PRODUCT USED FOR UNKNOWN INDICATION
     Dosage: UNK
     Route: 048
     Dates: start: 20080101

REACTIONS (4)
  - STOMATITIS [None]
  - TONGUE ULCERATION [None]
  - EYE HAEMORRHAGE [None]
  - DIARRHOEA [None]
